FAERS Safety Report 6645611-8 (Version None)
Quarter: 2010Q1

REPORT INFORMATION
  Report Type: 
  Country: None (occurrence: None)
  Receive Date: 20100319
  Receipt Date: 20100319
  Transmission Date: 20100710
  Serious: Yes (Other)
  Sender: FDA-Public Use
  Company Number: None

PATIENT
  Age: 42 Year
  Sex: Female
  Weight: 90.7194 kg

DRUGS (1)
  1. SOLODYN [Suspect]
     Indication: ACNE
     Dosage: 1 PER DAY OPHTHALMIC
     Route: 047
     Dates: start: 20080725, end: 20090220

REACTIONS (1)
  - BENIGN INTRACRANIAL HYPERTENSION [None]
